FAERS Safety Report 14716489 (Version 1)
Quarter: 2018Q2

REPORT INFORMATION
  Report Type: Spontaneous
  Country: KR (occurrence: KR)
  Receive Date: 20180404
  Receipt Date: 20180404
  Transmission Date: 20180711
  Serious: Yes (Life-Threatening, Other)
  Sender: FDA-Public Use
  Company Number: KR-PFIZER INC-2018133104

PATIENT
  Sex: Female

DRUGS (1)
  1. NEURONTIN [Suspect]
     Active Substance: GABAPENTIN
     Route: 048

REACTIONS (5)
  - Morbid thoughts [Unknown]
  - Pain [Unknown]
  - Suicide attempt [Unknown]
  - Nasal congestion [Unknown]
  - Ear discomfort [Unknown]
